FAERS Safety Report 20487092 (Version 1)
Quarter: 2022Q1

REPORT INFORMATION
  Report Type: Report from Study
  Country: BR (occurrence: BR)
  Receive Date: 20220217
  Receipt Date: 20220217
  Transmission Date: 20220423
  Serious: Yes (Death)
  Sender: FDA-Public Use
  Company Number: BR-JNJFOC-20220225901

PATIENT
  Age: 84 Year
  Sex: Male

DRUGS (1)
  1. IMBRUVICA [Interacting]
     Active Substance: IBRUTINIB
     Indication: Chronic lymphocytic leukaemia
     Route: 048
     Dates: start: 20160215, end: 202109

REACTIONS (4)
  - Multiple organ dysfunction syndrome [Fatal]
  - Infection [Fatal]
  - Drug interaction [Fatal]
  - Adverse event [Unknown]

NARRATIVE: CASE EVENT DATE: 20210901
